FAERS Safety Report 24787288 (Version 1)
Quarter: 2024Q4

REPORT INFORMATION
  Report Type: Spontaneous
  Country: US (occurrence: US)
  Receive Date: 20241230
  Receipt Date: 20241230
  Transmission Date: 20250115
  Serious: No
  Sender: Haleon PLC
  Company Number: US-HALEON-2219261

PATIENT

DRUGS (1)
  1. EXCEDRIN EXTRA STRENGTH HEADACHE [Suspect]
     Active Substance: ACETAMINOPHEN\ASPIRIN\CAFFEINE
     Indication: Pain
     Dosage: TOOK IN THE MORNING

REACTIONS (1)
  - Insomnia [Unknown]
